FAERS Safety Report 15958032 (Version 1)
Quarter: 2019Q1

REPORT INFORMATION
  Report Type: Spontaneous
  Country: GB (occurrence: GB)
  Receive Date: 20190213
  Receipt Date: 20190213
  Transmission Date: 20190417
  Serious: Yes (Other)
  Sender: FDA-Public Use
  Company Number: GB-PFIZER INC-2019059073

PATIENT
  Age: 44 Year
  Sex: Male
  Weight: 114 kg

DRUGS (14)
  1. CETIRIZINE [Concomitant]
     Active Substance: CETIRIZINE HYDROCHLORIDE
     Dosage: 1 DF, 1X/DAY
     Dates: start: 20180912
  2. DIPROBASE [PARAFFIN, LIQUID;WHITE SOFT PARAFFIN] [Concomitant]
     Dosage: UNK, 2X/DAY
     Route: 061
     Dates: start: 20180806
  3. RISPERIDONE. [Concomitant]
     Active Substance: RISPERIDONE
     Dosage: 1 DOSAGE FORM IN THE MORNING
     Dates: start: 20180704
  4. SERTRALINE [Concomitant]
     Active Substance: SERTRALINE HYDROCHLORIDE
     Dosage: 2 DOSAGE FORMS DAILY
     Dates: start: 20180904
  5. SERETIDE [Concomitant]
     Active Substance: FLUTICASONE PROPIONATE\SALMETEROL XINAFOATE
     Dosage: 4 DOSAGE FORMS (PUFFS) DAILY
     Dates: start: 20180504
  6. CROTAMITON [Concomitant]
     Active Substance: CROTAMITON
     Dosage: APPLY TO THE AFFECTED AREAS TWO OR THREE TIMES
     Dates: start: 20181220, end: 20190117
  7. FLUTICASONE FUROATE [Concomitant]
     Active Substance: FLUTICASONE FUROATE
     Dosage: 1 DOSAGE FROM DAILY, SPRAY TO BOTH NOSTRILS
     Route: 045
     Dates: start: 20180717
  8. IBUPROFEN. [Suspect]
     Active Substance: IBUPROFEN
     Dosage: 200MG
     Dates: start: 20170407
  9. MIRTAZAPINE. [Concomitant]
     Active Substance: MIRTAZAPINE
     Dosage: 1 DOSAGE FORM AT NIGHT
     Dates: start: 20180102, end: 20181114
  10. AMITRIPTYLINE HYDROCHLORIDE. [Concomitant]
     Active Substance: AMITRIPTYLINE HYDROCHLORIDE
     Dosage: 1 DOSAGE FORM AT NIGHT
     Dates: start: 20190108
  11. COCODAMOL [Concomitant]
     Active Substance: ACETAMINOPHEN\CODEINE PHOSPHATE
     Dosage: 4 DOSAGE FORMS DAILY, 2 MORNING 2 NIGHT
     Dates: start: 20171219
  12. NAPROXEN. [Concomitant]
     Active Substance: NAPROXEN
     Dosage: 2 DOSAGE FORMS DAILY(WITH OR AFTER FOOD)
     Dates: start: 20180828
  13. VENTOLIN [Concomitant]
     Active Substance: ALBUTEROL SULFATE
     Dosage: 2 DOSAGE FORMS (PUFFS) AS NEEDED
     Dates: start: 20170522
  14. OMEPRAZOLE. [Concomitant]
     Active Substance: OMEPRAZOLE
     Dosage: 1 DOSAGE FORM DAILY
     Dates: start: 20180829

REACTIONS (1)
  - Gastritis [Recovered/Resolved]

NARRATIVE: CASE EVENT DATE: 20190117
